FAERS Safety Report 6138488-0 (Version None)
Quarter: 2009Q1

REPORT INFORMATION
  Report Type: 
  Country: None (occurrence: None)
  Receive Date: 20090331
  Receipt Date: 20090327
  Transmission Date: 20090719
  Serious: Yes (Life-Threatening, Hospitalization, Other)
  Sender: FDA-Public Use
  Company Number: US-MERCK-0903USA01105

PATIENT
  Age: 75 Year
  Sex: Male
  Weight: 82 kg

DRUGS (14)
  1. JANUVIA [Suspect]
     Indication: TYPE 2 DIABETES MELLITUS
     Route: 048
     Dates: start: 20071201, end: 20090301
  2. NOVOLIN [Concomitant]
     Route: 065
  3. KEFLEX [Concomitant]
     Route: 065
  4. METFORMIN [Concomitant]
     Route: 065
  5. TRICOR [Concomitant]
     Route: 065
  6. IRON (UNSPECIFIED) [Concomitant]
     Route: 065
  7. PREDNISOLONE [Concomitant]
     Route: 065
  8. CARDIZEM [Concomitant]
     Route: 065
  9. NEUPOGEN [Concomitant]
     Route: 065
  10. NOVOLOG [Concomitant]
     Route: 065
  11. PRILOSEC [Concomitant]
     Route: 048
  12. COREG [Concomitant]
     Route: 065
  13. NASONEX [Concomitant]
     Route: 065
  14. LANOXIN [Concomitant]
     Route: 065

REACTIONS (2)
  - ILL-DEFINED DISORDER [None]
  - PANCYTOPENIA [None]
